FAERS Safety Report 17514997 (Version 1)
Quarter: 2020Q1

REPORT INFORMATION
  Report Type: Spontaneous
  Country: BE (occurrence: BE)
  Receive Date: 20200309
  Receipt Date: 20200309
  Transmission Date: 20200409
  Serious: Yes (Disabling, Other)
  Sender: FDA-Public Use
  Company Number: BE-SA-2020SA056407

PATIENT
  Age: 55 Year
  Sex: Female
  Weight: 75 kg

DRUGS (2)
  1. VENLAFAXINE [Concomitant]
     Active Substance: VENLAFAXINE HYDROCHLORIDE
     Dosage: 225 MG, QD
  2. ZOLPIDEM TARTRATE. [Suspect]
     Active Substance: ZOLPIDEM TARTRATE
     Indication: SLEEP DISORDER
     Dosage: 200 MG, QD (10 TO 15 YEARS OF USE)
     Route: 048

REACTIONS (5)
  - Overdose [Unknown]
  - Product use issue [Unknown]
  - Weaning failure [Not Recovered/Not Resolved]
  - Drug abuse [Unknown]
  - Dependence [Unknown]
